FAERS Safety Report 5750244-1 (Version None)
Quarter: 2008Q2

REPORT INFORMATION
  Report Type: 
  Country: None (occurrence: None)
  Receive Date: 20080523
  Receipt Date: 20080523
  Transmission Date: 20081010
  Serious: Yes (Life-Threatening, Hospitalization, Disabling, Other)
  Sender: FDA-Public Use
  Company Number: None

PATIENT
  Sex: Male
  Weight: 81.6475 kg

DRUGS (1)
  1. DIGITEK [Suspect]
     Indication: CARDIAC DISORDER
     Dosage: 1 DAILY

REACTIONS (3)
  - BRADYCARDIA [None]
  - CARDIAC ARREST [None]
  - PHARMACEUTICAL PRODUCT COMPLAINT [None]
